FAERS Safety Report 16270039 (Version 1)
Quarter: 2019Q2

REPORT INFORMATION
  Report Type: Spontaneous
  Country: IT (occurrence: IT)
  Receive Date: 20190503
  Receipt Date: 20190503
  Transmission Date: 20190711
  Serious: Yes (Hospitalization)
  Sender: FDA-Public Use
  Company Number: IT-TEVA-2019-IT-1044863

PATIENT
  Age: 39 Year
  Sex: Male

DRUGS (1)
  1. CIPROFLOXACIN. [Suspect]
     Active Substance: CIPROFLOXACIN
     Indication: DIVERTICULUM
     Route: 042
     Dates: start: 20190412, end: 20190412

REACTIONS (1)
  - Phlebitis [Recovered/Resolved]

NARRATIVE: CASE EVENT DATE: 20190412
